FAERS Safety Report 7542404 (Version 7)
Quarter: 2013Q4

REPORT INFORMATION
  Report Type: Spontaneous
  Country: US (occurrence: US)
  Receive Date: 20100816
  Receipt Date: 20131120
  Transmission Date: 20140711
  Serious: Yes (Hospitalization)
  Sender: FDA-Public Use
  Company Number: US-BAYER-201030472NA

PATIENT
  Age: 24 Year
  Sex: Female
  Weight: 67.57 kg

DRUGS (15)
  1. YAZ [Suspect]
     Indication: CONTRACEPTION
     Dosage: UNK UNK, QD
     Route: 048
     Dates: start: 20080815, end: 20080821
  2. YAZ [Suspect]
     Indication: ACNE
  3. YAZ [Suspect]
     Indication: PREMENSTRUAL DYSPHORIC DISORDER
  4. MACROBID [Concomitant]
     Dosage: 100 MG, BID
     Route: 048
  5. FLAGYL [Concomitant]
     Dosage: 250 MG, TID
     Route: 048
  6. PRENATAL VITAMINS [Concomitant]
     Dosage: UNK UNK, QD
     Route: 048
  7. PITOCIN [Concomitant]
     Indication: LABOUR INDUCTION
     Dosage: UNK
     Route: 042
     Dates: start: 20080709
  8. BUPIVACAINE [Concomitant]
     Indication: EPIDURAL ANALGESIA
     Dosage: 60 MG, UNK
     Route: 008
     Dates: start: 20080709
  9. FENTANYL [Concomitant]
     Indication: LABOUR PAIN
     Dosage: 0.25 MG, UNK
     Route: 008
     Dates: start: 20080709
  10. EPINEPHRINE [Concomitant]
     Indication: EPIDURAL ANALGESIA
     Dosage: 0.15 MG, UNK
     Route: 008
     Dates: start: 20080709
  11. MOTRIN [Concomitant]
     Indication: ABDOMINAL PAIN
     Dosage: 600MG/1 TAB EVERY 6 HOURS, PRN
  12. ZOLOFT [Concomitant]
     Indication: POSTPARTUM DEPRESSION
  13. DARVOCET [Concomitant]
  14. IBUPROFEN [Concomitant]
  15. IRON [FERROUS SULFATE] [Concomitant]

REACTIONS (4)
  - Cholecystitis chronic [None]
  - Nausea [None]
  - Pain [None]
  - Injury [None]
